FAERS Safety Report 13499762 (Version 2)
Quarter: 2017Q3

REPORT INFORMATION
  Report Type: Other
  Country: SE (occurrence: SE)
  Receive Date: 20170501
  Receipt Date: 20170725
  Transmission Date: 20171127
  Serious: Yes (Hospitalization)
  Sender: FDA-Public Use
  Company Number: SE-CELLTRION INC.-2017SE005383

PATIENT

DRUGS (4)
  1. INFLECTRA [Suspect]
     Active Substance: INFLIXIMAB-DYYB
     Indication: PSORIATIC ARTHROPATHY
     Dosage: 300 MG, SINGLE (3 DOSES OF 100 MG)
     Route: 065
     Dates: start: 20170309, end: 20170309
  2. BETAPRED [Suspect]
     Active Substance: BETAMETHASONE SODIUM PHOSPHATE
     Indication: PRODUCT USED FOR UNKNOWN INDICATION
     Dosage: 16 DF, UNK
     Route: 065
     Dates: start: 20170309, end: 20170309
  3. LORATADINE. [Suspect]
     Active Substance: LORATADINE
     Indication: PRODUCT USED FOR UNKNOWN INDICATION
     Dosage: 2 DF, UNK
     Route: 065
     Dates: start: 20170309, end: 20170309
  4. ALVEDON [Suspect]
     Active Substance: ACETAMINOPHEN
     Indication: PRODUCT USED FOR UNKNOWN INDICATION
     Dosage: UNK
     Route: 065
     Dates: start: 20170309, end: 20170309

REACTIONS (12)
  - Urticaria [Recovered/Resolved]
  - Pyrexia [Unknown]
  - Oropharyngeal pain [Unknown]
  - Cough [Unknown]
  - Tremor [Unknown]
  - Pain of skin [Unknown]
  - Feeling cold [Unknown]
  - General physical health deterioration [Unknown]
  - Headache [Unknown]
  - Fatigue [Unknown]
  - Pain [Unknown]
  - Dizziness [Unknown]

NARRATIVE: CASE EVENT DATE: 20170315
